FAERS Safety Report 4662414-4 (Version None)
Quarter: 2005Q2

REPORT INFORMATION
  Report Type: 
  Country: None (occurrence: None)
  Receive Date: 20050512
  Receipt Date: 20050429
  Transmission Date: 20051028
  Serious: Yes (Death)
  Sender: FDA-Public Use
  Company Number: 2005067714

PATIENT
  Sex: 0

DRUGS (1)
  1. AROMASIN [Suspect]
     Indication: ILL-DEFINED DISORDER
     Dosage: 25 MG (25 MG, DAILY), ORAL
     Route: 048
     Dates: start: 20040626

REACTIONS (1)
  - DEATH [None]
